FAERS Safety Report 10056027 (Version 8)
Quarter: 2020Q3

REPORT INFORMATION
  Report Type: Report from Study
  Country: PL (occurrence: PL)
  Receive Date: 20140403
  Receipt Date: 20151012
  Transmission Date: 20201105
  Serious: Yes (Other)
  Sender: FDA-Public Use
  Company Number: PL-JNJFOC-20140319011

PATIENT
  Age: 28 Year
  Sex: Male
  Weight: 71.1 kg

DRUGS (11)
  1. DUSPATALIN RETARD [Concomitant]
     Route: 048
     Dates: start: 20130109, end: 20130205
  2. SOLU?MEDROL [Concomitant]
     Active Substance: METHYLPREDNISOLONE SODIUM SUCCINATE
     Indication: COLITIS ULCERATIVE
     Route: 042
     Dates: start: 20130712, end: 20130717
  3. AFOBAM [Concomitant]
     Route: 048
     Dates: start: 20130109, end: 20130205
  4. GOLIMUMAB [Suspect]
     Active Substance: GOLIMUMAB
     Route: 058
  5. TRIDERM (BETAMETHASONE, CLOTRIMAZOLE, GENTAMICIN) [Concomitant]
     Route: 061
     Dates: start: 20120510, end: 20120516
  6. ENCORTON [Concomitant]
     Active Substance: PREDNISONE
     Indication: COLITIS ULCERATIVE
     Route: 048
     Dates: start: 20130718, end: 2013
  7. ENCORTON [Concomitant]
     Active Substance: PREDNISONE
     Indication: COLITIS ULCERATIVE
     Route: 048
     Dates: start: 20130504, end: 20130711
  8. IMURAN [Concomitant]
     Active Substance: AZATHIOPRINE
     Indication: COLITIS ULCERATIVE
     Route: 048
     Dates: end: 20131018
  9. ASAMAX [Concomitant]
     Indication: COLITIS ULCERATIVE
     Route: 048
     Dates: start: 200907
  10. CIPROPOL [Concomitant]
     Route: 048
     Dates: start: 20110622, end: 20110706
  11. GOLIMUMAB [Suspect]
     Active Substance: GOLIMUMAB
     Indication: COLITIS ULCERATIVE
     Route: 058
     Dates: start: 20100609, end: 20130821

REACTIONS (1)
  - Hodgkin^s disease [Not Recovered/Not Resolved]

NARRATIVE: CASE EVENT DATE: 20140303
